FAERS Safety Report 19253300 (Version 1)
Quarter: 2021Q2

REPORT INFORMATION
  Report Type: Spontaneous
  Country: US (occurrence: US)
  Receive Date: 20210513
  Receipt Date: 20210513
  Transmission Date: 20210717
  Serious: Yes (Hospitalization)
  Sender: FDA-Public Use
  Company Number: US-TEVA-2021-US-1909124

PATIENT
  Sex: Female

DRUGS (3)
  1. GABITRIL [Suspect]
     Active Substance: TIAGABINE HYDROCHLORIDE
     Indication: GENERALISED TONIC-CLONIC SEIZURE
     Dosage: START DATE: TAKING 30 YEARS
     Route: 065
  2. GABITRIL [Suspect]
     Active Substance: TIAGABINE HYDROCHLORIDE
     Dosage: DOSE: TAKING 8 MG, 10 MG, 10 MG, AND 8 MG, 5 TO 6 HOURS APART
     Route: 065
  3. LYRICA [Concomitant]
     Active Substance: PREGABALIN
     Indication: FIBROMYALGIA

REACTIONS (3)
  - Toxicity to various agents [Unknown]
  - Cerebral disorder [Unknown]
  - Aphasia [Unknown]

NARRATIVE: CASE EVENT DATE: 202104
